FAERS Safety Report 6616725-3 (Version None)
Quarter: 2010Q1

REPORT INFORMATION
  Report Type: 
  Country: None (occurrence: None)
  Receive Date: 20100305
  Receipt Date: 20100303
  Transmission Date: 20100710
  Serious: Yes (Death)
  Sender: FDA-Public Use
  Company Number: PHHO2010FR01610

PATIENT
  Sex: Male
  Weight: 90 kg

DRUGS (5)
  1. CERTICAN [Suspect]
     Indication: LIVER TRANSPLANT
     Route: 048
  2. TACROLIMUS COMP-TAC+ [Suspect]
     Indication: LIVER TRANSPLANT
     Dosage: UNK
     Route: 048
     Dates: start: 20080624
  3. ASPERGIC [Concomitant]
     Indication: THROMBOSIS PROPHYLAXIS
     Dosage: 250 MG, QD
     Route: 048
     Dates: start: 20080716
  4. INIPOMP [Concomitant]
     Indication: PROPHYLAXIS
     Dosage: 40 MG, QD
     Route: 048
     Dates: start: 20080528
  5. APROVEL [Concomitant]
     Indication: HYPERTENSION
     Dosage: 150 MG, QD
     Route: 048
     Dates: start: 20081219

REACTIONS (1)
  - SUDDEN DEATH [None]
